FAERS Safety Report 6244826-0 (Version None)
Quarter: 2009Q2

REPORT INFORMATION
  Report Type: 
  Country: None (occurrence: None)
  Receive Date: 20090625
  Receipt Date: 20090622
  Transmission Date: 20091009
  Serious: Yes (Life-Threatening, Hospitalization)
  Sender: FDA-Public Use
  Company Number: BR-WYE-H09853909

PATIENT
  Sex: Female

DRUGS (20)
  1. RAPAMUNE [Suspect]
     Indication: PROPHYLAXIS AGAINST TRANSPLANT REJECTION
     Route: 048
     Dates: start: 20030822, end: 20030101
  2. RAPAMUNE [Suspect]
     Route: 048
     Dates: start: 20030101
  3. MYCOPHENOLATE MOFETIL [Suspect]
     Indication: PROPHYLAXIS AGAINST TRANSPLANT REJECTION
     Dosage: VARIABLE DOSES
     Dates: start: 20030821, end: 20031124
  4. METHYLPREDNISOLONE [Suspect]
     Indication: PROPHYLAXIS AGAINST TRANSPLANT REJECTION
     Dosage: 1 GRAM ONCE
     Dates: start: 20030821
  5. PREDNISONE [Concomitant]
     Indication: PROPHYLAXIS AGAINST TRANSPLANT REJECTION
     Route: 048
     Dates: start: 20030822
  6. ATENOLOL [Concomitant]
  7. NIFEDIPINE [Concomitant]
     Dosage: NOT PROVIDED
     Dates: start: 20030824, end: 20031016
  8. CLONIDINE [Concomitant]
  9. AMLODIPINE [Concomitant]
     Dosage: NOT PROVIDED
     Dates: start: 20030212, end: 20040729
  10. AMOXICILLIN TRIHYDRATE/CLAVULANIC ACID [Concomitant]
     Dosage: NOT PROVIDED
     Dates: start: 20030906, end: 20030912
  11. AMOXICILLIN TRIHYDRATE/CLAVULANIC ACID [Concomitant]
     Dosage: NOT PROVIDED
     Dates: start: 20031008, end: 20031011
  12. CEFAZOLIN [Concomitant]
     Dosage: NOT PROVIDED
     Dates: start: 20030821, end: 20030825
  13. CEFEPIME [Concomitant]
     Dosage: NOT PROVIDED
     Dates: start: 20030823, end: 20031022
  14. FUROSEMIDE INTENSOL [Concomitant]
     Dosage: NOT PROVIDED
     Dates: start: 20031008, end: 20031028
  15. GANCICLOVIR [Concomitant]
     Dosage: NOT PROVIDED
     Dates: start: 20030821, end: 20030923
  16. SODIUM NITROPRUSSIDE [Concomitant]
     Dosage: NOT PROVIDED
     Dates: start: 20031012, end: 20031015
  17. PRAVASTATIN [Concomitant]
  18. SIMVASTATIN [Concomitant]
     Dosage: NOT PROVIDED
     Dates: start: 20030924
  19. DACLIZUMAB [Suspect]
     Indication: PROPHYLAXIS AGAINST TRANSPLANT REJECTION
     Dosage: 80 MG
     Route: 042
     Dates: start: 20030821
  20. DACLIZUMAB [Suspect]
     Dates: start: 20030904

REACTIONS (3)
  - DEHYDRATION [None]
  - HYPERTENSIVE CRISIS [None]
  - PYREXIA [None]
